FAERS Safety Report 7249579-5 (Version None)
Quarter: 2011Q1

REPORT INFORMATION
  Report Type: 
  Country: None (occurrence: None)
  Receive Date: 20110128
  Receipt Date: 20110124
  Transmission Date: 20110831
  Serious: Yes (Hospitalization)
  Sender: FDA-Public Use
  Company Number: US-B.I. PHARMACEUTICALS,INC./RIDGEFIELD-2010-BP-12062BP

PATIENT
  Age: 79 Year
  Sex: Male

DRUGS (10)
  1. PULMICORT [Concomitant]
     Indication: CHRONIC OBSTRUCTIVE PULMONARY DISEASE
     Dosage: PRN
  2. PREDNISONE SUSPENSION [Concomitant]
     Indication: CHRONIC OBSTRUCTIVE PULMONARY DISEASE
  3. COMBIVENT [Suspect]
     Indication: EMPHYSEMA
  4. XOPENEX [Concomitant]
  5. DUONEB [Concomitant]
     Indication: CHRONIC OBSTRUCTIVE PULMONARY DISEASE
     Dosage: PRN
  6. ATROVENT [Concomitant]
  7. COMBIVENT [Suspect]
     Indication: ASTHMA
  8. ALKA-SELTZER [Concomitant]
  9. COMBIVENT [Suspect]
     Indication: CHRONIC OBSTRUCTIVE PULMONARY DISEASE
     Dosage: 8 PUF
     Route: 055
     Dates: start: 20000101
  10. MURINE EAR WAX REMOVAL SYSTEM [Concomitant]

REACTIONS (4)
  - DRUG EFFECT DECREASED [None]
  - HYPERTENSION [None]
  - NEOPLASM MALIGNANT [None]
  - UNEVALUABLE EVENT [None]
